FAERS Safety Report 8530939-7 (Version None)
Quarter: 2012Q3

REPORT INFORMATION
  Report Type: 
  Country: None (occurrence: None)
  Receive Date: 20120723
  Receipt Date: 20120712
  Transmission Date: 20120928
  Serious: Yes (Other)
  Sender: FDA-Public Use
  Company Number: JP-ASTRAZENECA-2012SE40169

PATIENT
  Age: 80 Year

DRUGS (3)
  1. DIPRIVAN [Suspect]
     Dosage: DOSE UNKNOWN
     Route: 042
  2. CARBOCAIN [Suspect]
     Dosage: DOSE UNKNOWN
     Route: 065
  3. ROPIVACAINE HYDROCHLORIDE [Suspect]
     Dosage: 2MG/ML
     Route: 065

REACTIONS (1)
  - RENAL FAILURE ACUTE [None]
